FAERS Safety Report 19508127 (Version 1)
Quarter: 2021Q3

REPORT INFORMATION
  Report Type: Spontaneous
  Country: IN (occurrence: IN)
  Receive Date: 20210708
  Receipt Date: 20210708
  Transmission Date: 20211014
  Serious: Yes (Death)
  Sender: FDA-Public Use
  Company Number: IN-PFIZER INC-2021793696

PATIENT
  Age: 69 Year
  Sex: Male

DRUGS (1)
  1. LORBRIQUA [Suspect]
     Active Substance: LORLATINIB
     Dosage: 100 MG
     Route: 048
     Dates: start: 20210621

REACTIONS (1)
  - Death [Fatal]
